FAERS Safety Report 7321912-5 (Version None)
Quarter: 2011Q1

REPORT INFORMATION
  Report Type: 
  Country: None (occurrence: None)
  Receive Date: 20110228
  Receipt Date: 20110221
  Transmission Date: 20110831
  Serious: Yes (Hospitalization)
  Sender: FDA-Public Use
  Company Number: BR-ROCHE-761214

PATIENT
  Sex: Female
  Weight: 70 kg

DRUGS (15)
  1. PRELONE [Concomitant]
     Indication: PAIN
  2. ALENDRONATE SODIUM [Concomitant]
     Dosage: DRUG: ALENDIL CALCIO D
  3. TOCILIZUMAB [Suspect]
     Indication: RHEUMATOID ARTHRITIS
     Dosage: ROUTE: ENDOVENOUS; 16 INFUSION RECEIVED TILL 21 FEB 2011
     Route: 050
     Dates: start: 20090901
  4. GALVUS [Concomitant]
  5. METFORMIN HYDROCHLORIDE [Concomitant]
     Dosage: DRUG: GLIFAGE XR
  6. GALVUS [Concomitant]
  7. CALCIUM [Concomitant]
  8. GLUCOREUMIN [Concomitant]
  9. PANTOPRAZOLE [Concomitant]
     Indication: GASTRIC DISORDER
  10. ALENDRONATE SODIUM [Concomitant]
     Dosage: DRUG: ALENDIL CALCIO
  11. SIMVASTATIN [Concomitant]
     Indication: PROPHYLAXIS
     Dosage: INDICATION: AS PRECAUTION FOR BLOOD CHOLESTEROL
  12. PURAN T4 [Concomitant]
  13. ARADOIS [Concomitant]
  14. METHOTREXATE [Concomitant]
     Dosage: DOSE: 8 (UNSPECIFIED UNIT/WEEK)
  15. METHOTREXATE [Concomitant]

REACTIONS (4)
  - ARTHROPATHY [None]
  - RHEUMATOID ARTHRITIS [None]
  - DRUG INEFFECTIVE [None]
  - WEIGHT INCREASED [None]
